FAERS Safety Report 7753455-9 (Version None)
Quarter: 2011Q3

REPORT INFORMATION
  Report Type: 
  Country: None (occurrence: None)
  Receive Date: 20110915
  Receipt Date: 20110902
  Transmission Date: 20111222
  Serious: Yes (Hospitalization, Other)
  Sender: FDA-Public Use
  Company Number: US-ELI_LILLY_AND_COMPANY-US201105003059

PATIENT
  Sex: Female

DRUGS (30)
  1. FORTEO [Suspect]
     Indication: OSTEOPOROSIS
     Dosage: 20 UG, QD
     Route: 065
     Dates: start: 20100601, end: 20100701
  2. PROMETHAZINE [Concomitant]
     Dosage: UNK
     Route: 065
  3. LEVOTHYROXINE SODIUM [Concomitant]
     Dosage: 25 MG, QD
     Route: 065
  4. CITRACAL [Concomitant]
     Dosage: UNK
     Route: 065
  5. FORTEO [Suspect]
     Dosage: 20 UG, QD
     Route: 065
  6. PREDNISONE [Concomitant]
     Dosage: 5 MG, QD
     Route: 065
  7. FISH OIL [Concomitant]
     Dosage: UNK UNK, QD
     Route: 065
  8. LUNESTA [Concomitant]
     Dosage: 3 MG, QD
     Route: 065
  9. FORTEO [Suspect]
     Dosage: 20 UG, QD
  10. ASPIRIN [Concomitant]
     Dosage: 81 MG, QD
     Route: 065
  11. BENICAR [Concomitant]
     Dosage: 100 MG, QD
     Route: 065
  12. VITAMIN B [Concomitant]
     Dosage: UNK UNK, QD
     Route: 065
  13. METHOTREXATE [Concomitant]
     Dosage: 25 MG, WEEKLY (1/W)
     Route: 065
  14. TRAZODONE HCL [Concomitant]
     Dosage: 300 MG, QD
     Route: 065
  15. LEVOTHYROXINE SODIUM [Concomitant]
     Dosage: 200 MG, QD
     Route: 065
  16. FOLIC ACID [Concomitant]
     Dosage: 1 MG, QD
     Route: 065
  17. MIRALAX [Concomitant]
     Indication: CONSTIPATION
     Dosage: UNK
     Route: 065
  18. NEXIUM [Concomitant]
     Dosage: 40 MG, QD
     Route: 065
  19. SIMVASTATIN [Concomitant]
     Dosage: 40 MG, QD
     Route: 065
  20. SOMA [Concomitant]
     Dosage: 350 MG, EVERY 4 HRS
     Route: 065
  21. NIACIN [Concomitant]
     Dosage: 500 MG, QD
     Route: 065
  22. XANAX [Concomitant]
     Dosage: 1 MG, EVERY 6 HRS
     Route: 065
  23. PRASTERONE [Concomitant]
     Dosage: 25 MG, QD
     Route: 065
  24. SIMCOR [Concomitant]
     Dosage: UNK
     Route: 065
  25. CENTRUM SILVER [Concomitant]
     Dosage: UNK
     Route: 065
  26. VITAMIN D [Concomitant]
     Dosage: 1000 IU, QD
     Route: 065
  27. FORTEO [Suspect]
     Dosage: 20 UG, QD
     Route: 065
     Dates: start: 20110502
  28. CITALOPRAM HYDROBROMIDE [Concomitant]
     Dosage: 40 MG, QD
     Route: 065
  29. VERPAMIL HCL [Concomitant]
     Dosage: 180 MG, QD
     Route: 065
  30. ALENDRONATE SODIUM [Concomitant]
     Dosage: 70 MG, WEEKLY (1/W)
     Route: 065

REACTIONS (17)
  - ORAL PAIN [None]
  - SPINAL FRACTURE [None]
  - STOMATITIS [None]
  - CONTUSION [None]
  - CHEST PAIN [None]
  - BACK PAIN [None]
  - HAND FRACTURE [None]
  - FALL [None]
  - DRY MOUTH [None]
  - BALANCE DISORDER [None]
  - PAIN [None]
  - ROAD TRAFFIC ACCIDENT [None]
  - EXCORIATION [None]
  - PAIN IN EXTREMITY [None]
  - DRUG DOSE OMISSION [None]
  - DRUG INEFFECTIVE [None]
  - CHEST INJURY [None]
